FAERS Safety Report 15949760 (Version 3)
Quarter: 2019Q2

REPORT INFORMATION
  Report Type: Report from Study
  Country: US (occurrence: US)
  Receive Date: 20190212
  Receipt Date: 20190417
  Transmission Date: 20190711
  Serious: Yes (Hospitalization, Other)
  Sender: FDA-Public Use
  Company Number: PHEH2019US006224

PATIENT
  Sex: Male

DRUGS (2)
  1. ENTRESTO [Suspect]
     Active Substance: SACUBITRIL\VALSARTAN
     Indication: PRODUCT USED FOR UNKNOWN INDICATION
     Dosage: UNK
     Route: 048
  2. ENTRESTO [Suspect]
     Active Substance: SACUBITRIL\VALSARTAN
     Dosage: 0.5 DF OF (SACUBITRIL 24 MG/ VALSARTAN 26 MG), UNK
     Route: 065

REACTIONS (6)
  - Product prescribing error [Unknown]
  - Pneumonia [Recovering/Resolving]
  - Drug interaction [Unknown]
  - Blood pressure decreased [Unknown]
  - Gait disturbance [Unknown]
  - Wrong technique in product usage process [Unknown]
